FAERS Safety Report 15458224 (Version 1)
Quarter: 2018Q3

REPORT INFORMATION
  Report Type: Spontaneous
  Country: US (occurrence: US)
  Receive Date: 20180929
  Receipt Date: 20180929
  Transmission Date: 20181020
  Serious: Yes (Other)
  Sender: FDA-Public Use
  Company Number: None

PATIENT
  Age: 64 Year
  Sex: Female
  Weight: 60.3 kg

DRUGS (1)
  1. DULOXETINE. [Suspect]
     Active Substance: DULOXETINE
     Indication: FIBROMYALGIA
     Dates: start: 20171101, end: 20180914

REACTIONS (9)
  - Nausea [None]
  - Disturbance in attention [None]
  - Abdominal pain upper [None]
  - Headache [None]
  - Pulmonary congestion [None]
  - Tinnitus [None]
  - Depressed mood [None]
  - Dizziness [None]
  - Depression [None]

NARRATIVE: CASE EVENT DATE: 20180914
